FAERS Safety Report 24768073 (Version 1)
Quarter: 2024Q4

REPORT INFORMATION
  Report Type: Spontaneous
  Country: US (occurrence: US)
  Receive Date: 20241223
  Receipt Date: 20241223
  Transmission Date: 20250115
  Serious: No
  Sender: STI PHARMA
  Company Number: US-STI Pharma LLC-2167533

PATIENT
  Age: 29 Year
  Sex: Male

DRUGS (4)
  1. ETHAMBUTOL HYDROCHLORIDE [Suspect]
     Active Substance: ETHAMBUTOL HYDROCHLORIDE
  2. RIFAMPIN [Concomitant]
     Active Substance: RIFAMPIN
     Dates: start: 202303
  3. PREDNISONE [Concomitant]
     Active Substance: PREDNISONE
     Dates: start: 202312
  4. AZITHROMYCIN [Concomitant]
     Active Substance: AZITHROMYCIN
     Dates: start: 202303

REACTIONS (1)
  - Refusal of treatment by patient [Unknown]
